FAERS Safety Report 6104857-8 (Version None)
Quarter: 2009Q1

REPORT INFORMATION
  Report Type: 
  Country: None (occurrence: None)
  Receive Date: 20090306
  Receipt Date: 20090224
  Transmission Date: 20090719
  Serious: No
  Sender: FDA-Public Use
  Company Number: US-JNJFOC-20081200676

PATIENT
  Sex: Male
  Weight: 62.6 kg

DRUGS (13)
  1. FENTANYL TRANSDERMAL SYSTEM [Suspect]
     Route: 062
  2. FENTANYL TRANSDERMAL SYSTEM [Suspect]
     Indication: BACK PAIN
     Route: 062
  3. ULTRAM [Concomitant]
     Indication: PAIN
     Dosage: AS NEEDED
     Route: 048
  4. HYTRIN [Concomitant]
     Route: 048
  5. HYTRIN [Concomitant]
     Indication: FLUID RETENTION
     Route: 048
  6. LIBRIUM [Concomitant]
     Indication: ANXIETY
     Route: 048
  7. LIBRIUM [Concomitant]
     Indication: ABDOMINAL DISCOMFORT
     Route: 048
  8. LIBRIUM [Concomitant]
     Indication: NEUROPATHY PERIPHERAL
     Dosage: TWO TO THREE TIMES A DAY
     Route: 048
  9. UNKNOWN MEDICATION [Concomitant]
     Indication: BLOOD CHOLESTEROL INCREASED
     Route: 048
  10. LACTULOSE [Concomitant]
     Dosage: 2 TABLESPOONS
     Route: 048
  11. MIRTAZAPINE [Concomitant]
     Dosage: HALF TABLET AT BED TIME
     Route: 048
  12. LOVASTATIN [Concomitant]
     Dosage: WITH DINNER
     Route: 048
  13. GI COCKTAIL [Concomitant]
     Route: 048

REACTIONS (5)
  - APPLICATION SITE ERYTHEMA [None]
  - APPLICATION SITE IRRITATION [None]
  - APPLICATION SITE PRURITUS [None]
  - FEAR [None]
  - WRONG TECHNIQUE IN DRUG USAGE PROCESS [None]
